FAERS Safety Report 12429105 (Version 1)
Quarter: 2016Q2

REPORT INFORMATION
  Report Type: Spontaneous
  Country: CA (occurrence: CA)
  Receive Date: 20160602
  Receipt Date: 20160602
  Transmission Date: 20160815
  Serious: Yes (Death, Other)
  Sender: FDA-Public Use
  Company Number: CA-SYNEX-T201602131

PATIENT
  Weight: .65 kg

DRUGS (2)
  1. INOMAX [Suspect]
     Active Substance: NITRIC OXIDE
     Indication: PRODUCT USED FOR UNKNOWN INDICATION
     Dosage: UNK
     Dates: start: 20160522, end: 20160524
  2. SURFACTANT BL [Concomitant]
     Dosage: UNK
     Dates: start: 20160522

REACTIONS (4)
  - Off label use [Unknown]
  - Low birth weight baby [Fatal]
  - Heart rate decreased [Unknown]
  - Pneumothorax [Unknown]

NARRATIVE: CASE EVENT DATE: 2016
